FAERS Safety Report 16807829 (Version 1)
Quarter: 2019Q3

REPORT INFORMATION
  Report Type: Spontaneous
  Country: BR (occurrence: BR)
  Receive Date: 20190915
  Receipt Date: 20190915
  Transmission Date: 20191005
  Serious: Yes (Other)
  Sender: FDA-Public Use
  Company Number: PHHY2019BR213463

PATIENT
  Age: 26 Year
  Sex: Female

DRUGS (2)
  1. IMATINIB. [Suspect]
     Active Substance: IMATINIB MESYLATE
     Dosage: 600 MG, QD
     Route: 065
  2. IMATINIB. [Suspect]
     Active Substance: IMATINIB MESYLATE
     Indication: CHRONIC MYELOID LEUKAEMIA
     Dosage: 400 MG, QD
     Route: 065
     Dates: start: 200903

REACTIONS (7)
  - Chest pain [Unknown]
  - Pericardial effusion [Unknown]
  - Right ventricular diastolic collapse [Unknown]
  - Dyspnoea [Unknown]
  - Cough [Unknown]
  - Pleural effusion [Unknown]
  - Cardiac tamponade [Unknown]
